FAERS Safety Report 16750916 (Version 2)
Quarter: 2019Q3

REPORT INFORMATION
  Report Type: Spontaneous
  Country: IE (occurrence: IE)
  Receive Date: 20190828
  Receipt Date: 20190830
  Transmission Date: 20191005
  Serious: Yes (Other)
  Sender: FDA-Public Use
  Company Number: IE-MYLANLABS-2019M1073507

PATIENT
  Sex: Female
  Weight: 80 kg

DRUGS (8)
  1. FUSIDIC ACID [Concomitant]
     Active Substance: FUSIDIC ACID
     Dosage: 20 MILLIGRAM PER GRAM, QD, PRN
     Route: 061
  2. CLOZARIL [Suspect]
     Active Substance: CLOZAPINE
     Dosage: 300 MILLIGRAM, PM
     Route: 048
     Dates: start: 20190724
  3. CLOZARIL [Suspect]
     Active Substance: CLOZAPINE
     Indication: BIPOLAR DISORDER
     Dosage: 50 MILLIGRAM, AM
     Dates: start: 20190724
  4. CLEXANE [Concomitant]
     Active Substance: ENOXAPARIN SODIUM
     Dosage: 40 MILLIGRAM, SLC MANE
  5. DIAZEPAM. [Concomitant]
     Active Substance: DIAZEPAM
     Dosage: 05 MILLIGRAM, BID
     Route: 048
  6. KWELLS [Concomitant]
     Active Substance: SCOPOLAMINE HYDROBROMIDE
     Dosage: UNK, PRN/ NOCTE
     Route: 048
  7. PARACETAMOL [Concomitant]
     Active Substance: ACETAMINOPHEN
     Dosage: 1 GRAM, PRN/ TDS
     Route: 048
  8. LACTULOSE. [Concomitant]
     Active Substance: LACTULOSE
     Indication: CONSTIPATION
     Dosage: 10 WLS UNK, BID

REACTIONS (2)
  - Product use in unapproved indication [Unknown]
  - Cellulitis [Recovering/Resolving]

NARRATIVE: CASE EVENT DATE: 20190724
